FAERS Safety Report 8824117 (Version 2)
Quarter: 2013Q4

REPORT INFORMATION
  Report Type: Spontaneous
  Country: US (occurrence: US)
  Receive Date: 20121004
  Receipt Date: 20131101
  Transmission Date: 20140711
  Serious: No
  Sender: FDA-Public Use
  Company Number: US-009507513-1207USA000788

PATIENT
  Sex: Male

DRUGS (1)
  1. ISENTRESS [Suspect]
     Dosage: UNK
     Dates: start: 2010

REACTIONS (1)
  - Depressed mood [Unknown]
